FAERS Safety Report 21916037 (Version 1)
Quarter: 2023Q1

REPORT INFORMATION
  Report Type: Other
  Country: US (occurrence: US)
  Receive Date: 20230126
  Receipt Date: 20230126
  Transmission Date: 20230418
  Serious: Yes (Death, Other)
  Sender: FDA-Public Use
  Company Number: US-DG,L-000001

PATIENT
  Age: 60 Year
  Sex: Male

DRUGS (1)
  1. NYSTATIN [Suspect]
     Active Substance: NYSTATIN
     Indication: Dermatitis
     Route: 061

REACTIONS (29)
  - Cutaneous T-cell lymphoma [Fatal]
  - Staphylococcal bacteraemia [Unknown]
  - Diphtheria [Unknown]
  - Streptococcal bacteraemia [Unknown]
  - Sarcoidosis [Unknown]
  - Systemic lupus erythematosus [Unknown]
  - Lymphoma [Unknown]
  - Syphilis [Unknown]
  - Beta haemolytic streptococcal infection [Unknown]
  - Eczema nummular [Unknown]
  - Pruritus [Unknown]
  - Nasal congestion [Unknown]
  - Pharyngeal erythema [Unknown]
  - Rash maculo-papular [Unknown]
  - Skin lesion [Unknown]
  - Blister [Unknown]
  - Neoplasm [Unknown]
  - Pain in extremity [Unknown]
  - Peripheral swelling [Unknown]
  - Pain [Unknown]
  - Skin wound [Unknown]
  - Eschar [Unknown]
  - Lymphadenopathy [Unknown]
  - Hypotension [Unknown]
  - General physical health deterioration [Unknown]
  - Leukocytosis [Unknown]
  - Condition aggravated [Unknown]
  - Purulent discharge [Unknown]
  - Product use in unapproved indication [Unknown]
